APPROVED DRUG PRODUCT: PHENYLEPHRINE HYDROCHLORIDE
Active Ingredient: PHENYLEPHRINE HYDROCHLORIDE
Strength: 50MG/5ML (10MG/ML)
Dosage Form/Route: SOLUTION;INTRAVENOUS
Application: A208905 | Product #002 | TE Code: AP1
Applicant: SANDOZ INC
Approved: Jan 31, 2019 | RLD: No | RS: Yes | Type: RX